FAERS Safety Report 18228801 (Version 2)
Quarter: 2020Q3

REPORT INFORMATION
  Report Type: Spontaneous
  Country: IT (occurrence: IT)
  Receive Date: 20200903
  Receipt Date: 20200916
  Transmission Date: 20201103
  Serious: Yes (Other)
  Sender: FDA-Public Use
  Company Number: IT-TAKEDA-2020TUS037186

PATIENT
  Sex: Male

DRUGS (2)
  1. BRINTELLIX [Suspect]
     Active Substance: VORTIOXETINE HYDROBROMIDE
     Indication: PRODUCT USED FOR UNKNOWN INDICATION
     Dosage: UNK
     Route: 065
  2. RIVOTRIL [Suspect]
     Active Substance: CLONAZEPAM
     Indication: PRODUCT USED FOR UNKNOWN INDICATION
     Dosage: UNK
     Route: 065

REACTIONS (13)
  - Autonomic neuropathy [Unknown]
  - Paraesthesia [Unknown]
  - Malaise [Unknown]
  - Illness [Unknown]
  - Nervous system disorder [Unknown]
  - Mood altered [Unknown]
  - Myalgia [Unknown]
  - Muscular weakness [Unknown]
  - Paradoxical drug reaction [Unknown]
  - Syncope [Unknown]
  - Dysphagia [Unknown]
  - Confusional state [Unknown]
  - Burning sensation [Unknown]
